FAERS Safety Report 23933885 (Version 1)
Quarter: 2024Q2

REPORT INFORMATION
  Report Type: Spontaneous
  Country: AU (occurrence: AU)
  Receive Date: 20240603
  Receipt Date: 20240603
  Transmission Date: 20240715
  Serious: Yes (Hospitalization)
  Sender: FDA-Public Use
  Company Number: AU-JNJFOC-20230705666

PATIENT
  Age: 72 Year
  Sex: Male
  Weight: 79.6 kg

DRUGS (29)
  1. BORTEZOMIB [Suspect]
     Active Substance: BORTEZOMIB
     Indication: Plasma cell myeloma
     Dosage: 0.7 MG/M2
     Route: 058
     Dates: start: 20221208, end: 20221219
  2. BORTEZOMIB [Suspect]
     Active Substance: BORTEZOMIB
     Dosage: 2 ML
     Route: 058
     Dates: start: 20230106, end: 20230530
  3. DAPSONE [Suspect]
     Active Substance: DAPSONE
     Indication: Antifungal prophylaxis
     Dosage: 100 ML
     Route: 048
     Dates: start: 20230530, end: 20230703
  4. DEXAMETHASONE [Suspect]
     Active Substance: DEXAMETHASONE
     Indication: Plasma cell myeloma
     Dosage: 20 MG
     Route: 048
     Dates: start: 20221208, end: 20221222
  5. DEXAMETHASONE [Suspect]
     Active Substance: DEXAMETHASONE
     Dosage: 20 MG
     Route: 048
     Dates: start: 20230106, end: 20230531
  6. DEXAMETHASONE [Suspect]
     Active Substance: DEXAMETHASONE
     Dosage: UNK
     Route: 065
  7. LENALIDOMIDE [Suspect]
     Active Substance: LENALIDOMIDE
     Indication: Plasma cell myeloma
     Dosage: 25 MG
     Route: 048
     Dates: start: 20221208, end: 20221221
  8. LENALIDOMIDE [Suspect]
     Active Substance: LENALIDOMIDE
     Dosage: 25 MG
     Route: 048
     Dates: start: 20230106, end: 20230605
  9. ATOVAQUONE [Concomitant]
     Active Substance: ATOVAQUONE
     Indication: Infection prophylaxis
     Dosage: 1 DAY, 1500 MG
     Route: 048
     Dates: start: 20230704
  10. BUPRENORPHINE [Concomitant]
     Active Substance: BUPRENORPHINE
     Indication: Musculoskeletal chest pain
     Dosage: 10 UG, INTERVAL:1 WEEK
     Route: 061
     Dates: start: 20230705
  11. BUPRENORPHINE [Concomitant]
     Active Substance: BUPRENORPHINE
     Indication: Pain
     Dosage: 10 UG,INTERVAL: 1 WEEK
     Route: 061
     Dates: start: 20221230, end: 20230704
  12. BUPRENORPHINE [Concomitant]
     Active Substance: BUPRENORPHINE
     Dosage: 200 MG,INTERVAL: 1 AS NECESSARY
     Route: 060
     Dates: start: 20230704, end: 20230705
  13. BUPRENORPHINE [Concomitant]
     Active Substance: BUPRENORPHINE
     Dosage: 400 UG
     Route: 048
     Dates: start: 20221202
  14. BUPRENORPHINE [Concomitant]
     Active Substance: BUPRENORPHINE
     Indication: Pain
     Dosage: INTERVAL:1 WEEK
     Route: 060
     Dates: start: 20230708
  15. OXYCODONE HYDROCHLORIDE [Concomitant]
     Active Substance: OXYCODONE HYDROCHLORIDE
     Indication: Pain
     Dosage: 5 MG
     Route: 048
     Dates: start: 20221202
  16. ESOMEPRAZOLE [Concomitant]
     Active Substance: ESOMEPRAZOLE
     Indication: Gastrooesophageal reflux disease
     Dosage: 20 MG, INTERVAL: 1 DAY
     Route: 048
     Dates: start: 20221203
  17. MAGNESIUM ASPARTATE [Concomitant]
     Active Substance: MAGNESIUM ASPARTATE
     Indication: Prophylaxis
     Dosage: 500 MG,INTERVAL: 1 DAY
     Route: 048
     Dates: start: 20230707
  18. MAGNESIUM ASPARTATE [Concomitant]
     Active Substance: MAGNESIUM ASPARTATE
     Dosage: UNK
     Route: 065
     Dates: start: 20230704, end: 20230706
  19. ACETAMINOPHEN [Concomitant]
     Active Substance: ACETAMINOPHEN
     Indication: Pain
     Dosage: 1000 MG
     Route: 048
     Dates: start: 20221205
  20. PHOSPHORUS [Concomitant]
     Active Substance: PHOSPHORUS
     Indication: Prophylaxis
     Dosage: 1000 MG
     Route: 048
     Dates: start: 20221203
  21. PREGABALIN [Concomitant]
     Active Substance: PREGABALIN
     Indication: Pain
     Dosage: 25 MG, INTERVAL:1 DAY
     Route: 048
     Dates: start: 20230426
  22. PREGABALIN [Concomitant]
     Active Substance: PREGABALIN
     Indication: Neuralgia
     Dosage: 75 MG,INTERVAL: 1 DAY
     Route: 048
     Dates: start: 20221202
  23. SPIRONOLACTONE [Concomitant]
     Active Substance: SPIRONOLACTONE
     Indication: Oedema peripheral
     Dosage: 12.5 MG, INTERVAL: 1 DAY
     Route: 048
     Dates: start: 20230105
  24. SPIRONOLACTONE [Concomitant]
     Active Substance: SPIRONOLACTONE
     Dosage: 25 MG,INTERVAL: 1 DAY
     Route: 048
     Dates: start: 20230707, end: 20230707
  25. SPIRONOLACTONE [Concomitant]
     Active Substance: SPIRONOLACTONE
     Dosage: 25 MG,INTERVAL:1 DAY
     Route: 048
     Dates: start: 20230708, end: 20230708
  26. SPIRONOLACTONE [Concomitant]
     Active Substance: SPIRONOLACTONE
     Dosage: 25 MG,INTERVAL:1 DAY
     Route: 048
     Dates: start: 20230709, end: 20230710
  27. SPIRONOLACTONE [Concomitant]
     Active Substance: SPIRONOLACTONE
     Dosage: 25 MG,INTERVAL:1 DAY
     Route: 048
     Dates: start: 20230711, end: 20230711
  28. SPIRONOLACTONE [Concomitant]
     Active Substance: SPIRONOLACTONE
     Dosage: 25 MG,INTERVAL:1 DAY
     Route: 048
     Dates: start: 20230712, end: 20230712
  29. NALOXONE HYDROCHLORIDE\OXYCODONE HYDROCHLORIDE [Concomitant]
     Active Substance: NALOXONE HYDROCHLORIDE\OXYCODONE HYDROCHLORIDE
     Indication: Pain
     Dosage: 1 DAY
     Route: 048
     Dates: start: 20221202

REACTIONS (3)
  - Haemolysis [Unknown]
  - Haemophilus infection [Unknown]
  - Upper respiratory tract infection [Recovered/Resolved]

NARRATIVE: CASE EVENT DATE: 20230704
